FAERS Safety Report 11179593 (Version 2)
Quarter: 2015Q2

REPORT INFORMATION
  Report Type: Not Available
  Country: GB (occurrence: GB)
  Receive Date: 20150611
  Receipt Date: 20150623
  Transmission Date: 20150821
  Serious: Yes (Death, Hospitalization)
  Sender: FDA-Public Use
  Company Number: GB-BEH-2015051674

PATIENT
  Age: 58 Year
  Sex: Male
  Weight: 105 kg

DRUGS (6)
  1. BECONASE AQ [Concomitant]
     Active Substance: BECLOMETHASONE DIPROPIONATE MONOHYDRATE
  2. DOXAZOSIN [Concomitant]
     Active Substance: DOXAZOSIN\DOXAZOSIN MESYLATE
  3. FELODIPINE. [Concomitant]
     Active Substance: FELODIPINE
  4. PRIVIGEN [Suspect]
     Active Substance: HUMAN IMMUNOGLOBULIN G
     Indication: MULTIFOCAL MOTOR NEUROPATHY
     Route: 042
     Dates: start: 20141117, end: 20141121
  5. AMLODIPINE [Concomitant]
     Active Substance: AMLODIPINE BESYLATE
  6. LISINOPRIL. [Concomitant]
     Active Substance: LISINOPRIL

REACTIONS (10)
  - Anaemia [Not Recovered/Not Resolved]
  - Hypokalaemic syndrome [Not Recovered/Not Resolved]
  - Myocardial ischaemia [Fatal]
  - Blood urine present [Not Recovered/Not Resolved]
  - Hyponatraemic syndrome [Not Recovered/Not Resolved]
  - Dyspnoea [Not Recovered/Not Resolved]
  - Hypertensive heart disease [Fatal]
  - Dysarthria [Not Recovered/Not Resolved]
  - Cardiac failure congestive [Fatal]
  - Condition aggravated [Not Recovered/Not Resolved]

NARRATIVE: CASE EVENT DATE: 20141124
